FAERS Safety Report 8827236 (Version 1)
Quarter: 2012Q4

REPORT INFORMATION
  Report Type: 
  Country: US (occurrence: US)
  Receive Date: 20121005
  Receipt Date: 20121005
  Transmission Date: 20130627
  Serious: No
  Sender: FDA-Public Use
  Company Number: US-ASTRAZENECA-2012SE74957

PATIENT

DRUGS (2)
  1. PULMICORT FLEXHALER [Suspect]
     Dosage: TWO  BID X 3 - 5 DAYS
     Route: 055
  2. PULMICORT FLEXHALER [Suspect]
     Dosage: ONE  BID
     Route: 055

REACTIONS (2)
  - Treatment noncompliance [Unknown]
  - Off label use [None]
